FAERS Safety Report 4614633-0 (Version None)
Quarter: 2005Q1

REPORT INFORMATION
  Report Type: 
  Country: None (occurrence: None)
  Receive Date: 20050309
  Receipt Date: 20041122
  Transmission Date: 20050727
  Serious: Yes (Hospitalization)
  Sender: FDA-Public Use
  Company Number: A03200404002

PATIENT
  Age: 79 Year
  Sex: Male

DRUGS (11)
  1. KAYEXALATE [Suspect]
     Indication: HYPERKALAEMIA
     Dosage: 2 DOSES OF 60 G EACH, ONE IN AFTERNOON AND ONE THAT NIGHT - ORAL
     Route: 048
  2. SORBITOL [Suspect]
     Dosage: ONE DOSE IN AFTERNOON AND ONE THAT NIGHT
  3. ALBUTEROL [Concomitant]
  4. IPRATROPIUM BROMIDE [Concomitant]
  5. TRIAMCINOLONE [Concomitant]
  6. WARFARIN [Concomitant]
  7. METOPROLOL SUCCINATE [Concomitant]
  8. SIMVASTATIN [Concomitant]
  9. ACETYLSALICYLIC ACID SRT [Concomitant]
  10. OXYCODONE AND ACETAMINOPHEN [Concomitant]
  11. DIGOXIN [Concomitant]

REACTIONS (3)
  - ABDOMINAL DISTENSION [None]
  - DIARRHOEA [None]
  - GASTROINTESTINAL NECROSIS [None]
